FAERS Safety Report 6483562-2 (Version None)
Quarter: 2009Q4

REPORT INFORMATION
  Report Type: 
  Country: None (occurrence: None)
  Receive Date: 20091208
  Receipt Date: 20091208
  Transmission Date: 20100525
  Serious: Yes (Other)
  Sender: FDA-Public Use
  Company Number: None

PATIENT
  Age: 9 Month
  Sex: Male
  Weight: 9.5 kg

DRUGS (2)
  1. TAMIFLU [Suspect]
     Indication: INFLUENZA
     Dosage: 1/2 TEASPOONFUL TWICE A DAY BUCCAL
     Route: 002
     Dates: start: 20091118, end: 20091118
  2. TAMIFLU [Suspect]
     Dates: start: 20091119, end: 20091119

REACTIONS (7)
  - ABNORMAL BEHAVIOUR [None]
  - DYSKINESIA [None]
  - HALLUCINATION [None]
  - POISONING [None]
  - STRABISMUS [None]
  - UNEVALUABLE EVENT [None]
  - VOMITING [None]
